FAERS Safety Report 21594305 (Version 2)
Quarter: 2022Q4

REPORT INFORMATION
  Report Type: Spontaneous
  Country: JP (occurrence: JP)
  Receive Date: 20221115
  Receipt Date: 20221128
  Transmission Date: 20230112
  Serious: Yes (Hospitalization)
  Sender: FDA-Public Use
  Company Number: JP-002147023-NVSJ2022JP100816

PATIENT
  Age: 80 Year
  Sex: Male

DRUGS (2)
  1. GLYCOPYRRONIUM\INDACATEROL [Suspect]
     Active Substance: GLYCOPYRRONIUM\INDACATEROL
     Indication: Overlap syndrome
     Dosage: 1 DOSAGE FORM, QD
  2. ASMANEX [Concomitant]
     Active Substance: MOMETASONE FUROATE
     Indication: Overlap syndrome
     Dosage: 1 DOSAGE FORM, BID

REACTIONS (1)
  - Asthma [Recovered/Resolved]

NARRATIVE: CASE EVENT DATE: 20200201
